FAERS Safety Report 9682765 (Version 1)
Quarter: 2013Q4

REPORT INFORMATION
  Report Type: Spontaneous
  Country: US (occurrence: US)
  Receive Date: 20131112
  Receipt Date: 20131112
  Transmission Date: 20140711
  Serious: No
  Sender: FDA-Public Use
  Company Number: US-009507513-1311USA004186

PATIENT
  Sex: Female

DRUGS (5)
  1. DULERA [Suspect]
     Indication: ASTHMA
     Dosage: 200/10MCG, QD
     Route: 055
     Dates: start: 2013, end: 201311
  2. DULERA [Suspect]
     Dosage: 100/5MCG, QD
     Route: 055
     Dates: start: 201311, end: 201311
  3. DULERA [Suspect]
     Dosage: 200/10MCG, QD
     Route: 055
     Dates: start: 201311, end: 201311
  4. ALBUTEROL [Concomitant]
     Dosage: UNK
  5. LEVAQUIN [Concomitant]
     Dosage: UNK

REACTIONS (4)
  - Pruritus [Recovered/Resolved]
  - Swollen tongue [Recovered/Resolved]
  - Inappropriate schedule of drug administration [Unknown]
  - Drug ineffective [Unknown]
